FAERS Safety Report 24433831 (Version 1)
Quarter: 2024Q4

REPORT INFORMATION
  Report Type: Spontaneous
  Country: US (occurrence: US)
  Receive Date: 20241014
  Receipt Date: 20241014
  Transmission Date: 20250114
  Serious: No
  Sender: SPROUT PHARMACEUTICALS, INC.
  Company Number: US-Sprout Pharmaceuticals, Inc.-2024SP000060

PATIENT
  Age: 65 Year
  Sex: Male
  Weight: 85.806 kg

DRUGS (5)
  1. ADDYI [Suspect]
     Active Substance: FLIBANSERIN
     Indication: Libido decreased
     Dosage: SPROMC-3111; SPROMC-3179
     Route: 048
     Dates: start: 202401
  2. CIALIS [Concomitant]
     Active Substance: TADALAFIL
     Indication: Erectile dysfunction
  3. CRESTOR [Concomitant]
     Active Substance: ROSUVASTATIN CALCIUM
     Indication: Blood cholesterol increased
  4. VYLEESI [Concomitant]
     Active Substance: BREMELANOTIDE ACETATE
     Indication: Product used for unknown indication
  5. FLOMAX [Concomitant]
     Active Substance: TAMSULOSIN HYDROCHLORIDE
     Indication: Product used for unknown indication

REACTIONS (7)
  - Product use in unapproved indication [Unknown]
  - Product use issue [Unknown]
  - Abdominal pain upper [Recovered/Resolved]
  - Back disorder [Unknown]
  - Spondylolisthesis [Unknown]
  - Nausea [Recovered/Resolved]
  - Insomnia [Recovered/Resolved]
